FAERS Safety Report 5794764-2 (Version None)
Quarter: 2008Q2

REPORT INFORMATION
  Report Type: 
  Country: None (occurrence: None)
  Receive Date: 20080625
  Receipt Date: 20080610
  Transmission Date: 20081010
  Serious: Yes (Hospitalization)
  Sender: FDA-Public Use
  Company Number: 08P-062-0456813-00

PATIENT
  Age: 11 Month
  Sex: Male

DRUGS (1)
  1. SYNAGIS [Suspect]
     Indication: IMMUNISATION
     Dosage: 100MG/50MG (UNIT DOSE) (100MG/50MG); SUBCUTANEOUS
     Route: 058

REACTIONS (2)
  - BRONCHITIS CHRONIC [None]
  - RESPIRATORY SYNCYTIAL VIRUS BRONCHIOLITIS [None]
